FAERS Safety Report 14006516 (Version 1)
Quarter: 2017Q3

REPORT INFORMATION
  Report Type: Report from Study
  Country: CA (occurrence: CA)
  Receive Date: 20170925
  Receipt Date: 20170925
  Transmission Date: 20171128
  Serious: Yes (Other)
  Sender: FDA-Public Use
  Company Number: CA-AMGEN-CANSP2017059962

PATIENT
  Age: 75 Year
  Sex: Female

DRUGS (8)
  1. VALSARTAN HCT [Concomitant]
     Active Substance: HYDROCHLOROTHIAZIDE\VALSARTAN
     Indication: HYPERTENSION
     Dosage: UNK
  2. PULMICORT TURBUHALER [Concomitant]
     Active Substance: BUDESONIDE
  3. CALCIUM [Concomitant]
     Active Substance: CALCIUM
  4. MULTIVITAMIN [Concomitant]
     Active Substance: VITAMINS
  5. PROLIA [Suspect]
     Active Substance: DENOSUMAB
     Indication: OSTEOPOROSIS
     Dosage: UNK
     Route: 065
     Dates: start: 201502
  6. VENTOLIN [Concomitant]
     Active Substance: ALBUTEROL SULFATE
  7. VITAMIN D [Concomitant]
     Active Substance: CHOLECALCIFEROL
     Dosage: UNK UNK, QWK
  8. ALLOPURINOL. [Concomitant]
     Active Substance: ALLOPURINOL

REACTIONS (13)
  - Nasopharyngitis [Not Recovered/Not Resolved]
  - Cough [Unknown]
  - Lethargy [Unknown]
  - Unevaluable event [Unknown]
  - Cardiac pacemaker insertion [Unknown]
  - Dizziness [Unknown]
  - Pain [Unknown]
  - Malaise [Unknown]
  - Heart rate decreased [Unknown]
  - Fatigue [Unknown]
  - Spinal compression fracture [Unknown]
  - Influenza like illness [Unknown]
  - Hypotension [Recovered/Resolved]

NARRATIVE: CASE EVENT DATE: 201703
